FAERS Safety Report 10397234 (Version 2)
Quarter: 2014Q4

REPORT INFORMATION
  Report Type: Spontaneous
  Country: JP (occurrence: JP)
  Receive Date: 20140820
  Receipt Date: 20141030
  Transmission Date: 20150528
  Serious: Yes (Other)
  Sender: FDA-Public Use
  Company Number: PHHY2013JP160890

PATIENT
  Age: 48 Year
  Sex: Male

DRUGS (5)
  1. GLIVEC [Suspect]
     Active Substance: IMATINIB MESYLATE
     Dosage: 600 MG, QD
     Route: 065
     Dates: end: 20120105
  2. GLIVEC [Suspect]
     Active Substance: IMATINIB MESYLATE
     Indication: PRODUCT USED FOR UNKNOWN INDICATION
     Dosage: UNK
     Route: 065
  3. TASIGNA [Suspect]
     Active Substance: NILOTINIB
     Indication: CHRONIC MYELOID LEUKAEMIA
     Dosage: UNK
     Route: 065
     Dates: start: 20120105
  4. TASIGNA [Suspect]
     Active Substance: NILOTINIB
     Dosage: UNK
     Route: 065
  5. TASIGNA [Suspect]
     Active Substance: NILOTINIB
     Dosage: 800 MG, QD
     Route: 065
     Dates: start: 20130123

REACTIONS (5)
  - Cardiac failure [Recovered/Resolved]
  - Mitral valve incompetence [Recovered/Resolved]
  - Nausea [Unknown]
  - Dyspnoea [Unknown]
  - Pleural effusion [Recovered/Resolved]
